FAERS Safety Report 6606439-8 (Version None)
Quarter: 2010Q1

REPORT INFORMATION
  Report Type: 
  Country: None (occurrence: None)
  Receive Date: 20100226
  Receipt Date: 20100218
  Transmission Date: 20100710
  Serious: Yes (Hospitalization, Other)
  Sender: FDA-Public Use
  Company Number: BR-ABBOTT-09P-020-0586430-00

PATIENT
  Sex: Female
  Weight: 75 kg

DRUGS (9)
  1. HUMIRA [Suspect]
     Indication: RHEUMATOID ARTHRITIS
     Route: 058
     Dates: start: 20060101, end: 20070101
  2. HUMIRA [Suspect]
     Route: 058
     Dates: start: 20070101
  3. METHOTREXATE [Concomitant]
     Indication: RHEUMATOID ARTHRITIS
     Route: 048
  4. FLUOXETINE+ UNKNOWN DRUGS (MAGISTRAL FORMULA) [Concomitant]
     Indication: DRUG USE FOR UNKNOWN INDICATION
     Route: 062
  5. MELOXICAM/DEFLAZACORT/FAMOTIDINE/FLUOXETINE [Concomitant]
     Indication: RHEUMATOID ARTHRITIS
     Dosage: MELOXICAM 15MG/DEFLAZACORT 6MG/FAMOTIDINE 40MG/FLUXETINE 20MG
     Route: 048
  6. MELOXICAM/DEFLAZACORT/FAMOTIDINE/FLUOXETINE [Concomitant]
     Indication: GASTROOESOPHAGEAL REFLUX DISEASE
  7. MELOXICAM/DEFLAZACORT/FAMOTIDINE/FLUOXETINE [Concomitant]
     Indication: ANXIETY
  8. CALCIUM/VITAMIN D4 [Concomitant]
     Indication: OSTEOARTHRITIS
     Route: 048
  9. RISEDRONATE SODIUM [Concomitant]
     Indication: MINERAL SUPPLEMENTATION
     Route: 048

REACTIONS (12)
  - ANAEMIA [None]
  - ARTHRALGIA [None]
  - DEPRESSION [None]
  - HIP DISARTICULATION [None]
  - HYPOKINESIA [None]
  - INAPPROPRIATE SCHEDULE OF DRUG ADMINISTRATION [None]
  - INJECTION SITE ERYTHEMA [None]
  - INJECTION SITE PAIN [None]
  - JOINT ANKYLOSIS [None]
  - MOBILITY DECREASED [None]
  - OSTEOPOROSIS [None]
  - SHOCK [None]
